FAERS Safety Report 20484228 (Version 7)
Quarter: 2022Q4

REPORT INFORMATION
  Report Type: Other
  Country: GB (occurrence: GB)
  Receive Date: 20220217
  Receipt Date: 20221017
  Transmission Date: 20230113
  Serious: Yes (Death, Hospitalization, Other)
  Sender: FDA-Public Use
  Company Number: None

PATIENT
  Age: 73 Year
  Sex: Female
  Weight: 72 kg

DRUGS (37)
  1. DEXAMETHASONE [Suspect]
     Active Substance: DEXAMETHASONE
     Indication: Plasma cell myeloma
     Dosage: 40 MILLIGRAM, ONCE A DAY
     Route: 048
     Dates: start: 20160223
  2. DEXAMETHASONE [Suspect]
     Active Substance: DEXAMETHASONE
     Dosage: 40 MILLIGRAM, EVERY WEEK
     Route: 048
     Dates: start: 20160223
  3. DEXAMETHASONE [Suspect]
     Active Substance: DEXAMETHASONE
     Dosage: 40 MILLIGRAM, EVERY WEEK
     Route: 048
     Dates: start: 20160223, end: 20160315
  4. DEXAMETHASONE [Suspect]
     Active Substance: DEXAMETHASONE
     Dosage: 40 MILLIGRAM
     Route: 048
     Dates: start: 20160223, end: 20160302
  5. DEXAMETHASONE [Suspect]
     Active Substance: DEXAMETHASONE
     Dosage: 40 MILLIGRAM, PER WEEK (RECEIVED TILL 2-MAR-2016 AND ALSO RECEIVED 15-MAR-2016 (8 DAYS), 5.7143 MILL
     Route: 048
     Dates: start: 20160223, end: 20160302
  6. DEXAMETHASONE [Suspect]
     Active Substance: DEXAMETHASONE
     Dosage: 40 MILLIGRAM, UNKNOWN
     Route: 065
     Dates: start: 20160315
  7. DEXAMETHASONE [Suspect]
     Active Substance: DEXAMETHASONE
     Dosage: 5.71 MILLIGRAM, UNKNOWN
     Route: 065
     Dates: start: 20160315
  8. DEXAMETHASONE [Suspect]
     Active Substance: DEXAMETHASONE
     Dosage: 40 MILLIGRAM PER WEEK, 1 DOSE WEEKLY
     Route: 048
     Dates: start: 20160223, end: 20160315
  9. DEXAMETHASONE [Suspect]
     Active Substance: DEXAMETHASONE
     Dosage: 5.71 MILLIGRAM, 1 DOSE WEEKLY
     Route: 048
     Dates: start: 20160223
  10. DEXAMETHASONE [Suspect]
     Active Substance: DEXAMETHASONE
     Dosage: 40 MILLIGRAM, (RECIEVED TILL 02-MAR-2016 AND ALSO RECEIVED 15-MAR-2016(8DAYS) 5.7143MG)
     Route: 065
     Dates: start: 20160315, end: 20160322
  11. DEXAMETHASONE [Suspect]
     Active Substance: DEXAMETHASONE
     Dosage: 5.71 MILLIGRAM, 1 DOSE WEEKLY
     Route: 048
     Dates: start: 20160223, end: 20160302
  12. ALLOPURINOL [Suspect]
     Active Substance: ALLOPURINOL
     Indication: Prophylaxis
     Dosage: 200 MILLIGRAM, PER DAY (200 MILLIGRAM, ONCE A DAY)
     Route: 048
     Dates: start: 20160223
  13. ALLOPURINOL [Suspect]
     Active Substance: ALLOPURINOL
     Indication: Plasma cell myeloma
     Dosage: 40 MILLIGRAM, UNKNOWN
     Route: 065
  14. ALLOPURINOL [Suspect]
     Active Substance: ALLOPURINOL
     Dosage: 3 MILLIGRAM, UNKNOWN
     Route: 065
     Dates: start: 20160223, end: 20160223
  15. ALLOPURINOL [Suspect]
     Active Substance: ALLOPURINOL
     Dosage: 3 MILLIGRAM, UNKNOWN
     Route: 048
     Dates: start: 20160223, end: 20160321
  16. ALLOPURINOL [Suspect]
     Active Substance: ALLOPURINOL
     Dosage: 3 MILLIGRAM, UNKNOWN
     Route: 048
     Dates: start: 20160223, end: 20160228
  17. ALLOPURINOL [Suspect]
     Active Substance: ALLOPURINOL
     Dosage: 40 MILLIGRAM, UNKNOWN
     Route: 048
     Dates: start: 20160315
  18. ALLOPURINOL [Suspect]
     Active Substance: ALLOPURINOL
     Dosage: 40 MILLIGRAM, PER WEEK, (CUMULATIVE DOSE: 40 MG), TABLET
     Route: 048
     Dates: start: 20160223
  19. ALLOPURINOL [Suspect]
     Active Substance: ALLOPURINOL
     Dosage: 3 MILLIGRAM, PER DAY
     Route: 048
     Dates: start: 20160223, end: 20160228
  20. ALLOPURINOL [Suspect]
     Active Substance: ALLOPURINOL
     Dosage: 40 MILLIGRAM, PER DAY
     Route: 048
     Dates: start: 20160315
  21. ALLOPURINOL [Suspect]
     Active Substance: ALLOPURINOL
     Dosage: 3 MILLIGRAM, PER DAY
     Route: 048
     Dates: start: 20160223, end: 20160321
  22. ALLOPURINOL [Suspect]
     Active Substance: ALLOPURINOL
     Dosage: 40 MILLIGRAM, UNKNOWN
     Route: 048
     Dates: start: 20160223, end: 20160228
  23. ALLOPURINOL [Suspect]
     Active Substance: ALLOPURINOL
     Dosage: 40 MILLIGRAM, PER WEEK
     Route: 048
     Dates: start: 20160315
  24. POMALIDOMIDE [Suspect]
     Active Substance: POMALIDOMIDE
     Indication: Plasma cell myeloma
     Dosage: 84 MILLIGRAM, (84 MG, 28 DAYS (3 MILLIGRAM))
     Route: 048
     Dates: start: 20160223, end: 20160315
  25. POMALIDOMIDE [Suspect]
     Active Substance: POMALIDOMIDE
     Dosage: 84 MILLIGRAM, (84 MG, 28 PER DAY (3 MILLIGRAM))
     Route: 048
     Dates: start: 20160223, end: 20160228
  26. POMALIDOMIDE [Suspect]
     Active Substance: POMALIDOMIDE
     Dosage: 84 MILLIGRAM, (84 MILLIGRAM, 3 MILLIGRAM, ALSO RECEIVED ON 28 FEB 2016; ALSO RECEIVED 4 MG)
     Route: 048
     Dates: start: 20160223, end: 20160321
  27. POMALIDOMIDE [Suspect]
     Active Substance: POMALIDOMIDE
     Dosage: 40 MILLIGRAM RECEIVED TILL 2-MAR-2016 AND ALSO RECEIVED TILL 08-MAR-2016(8DAYS) 5.7143MG
     Route: 065
     Dates: start: 20160315
  28. POMALIDOMIDE [Suspect]
     Active Substance: POMALIDOMIDE
     Dosage: 84 MILLIGRAM, 3 MILLIGRAM, ALSO RECEIVED ON 28-FEB-2016; ALSO RECEIVED 4 MG
     Route: 048
     Dates: start: 20160223, end: 20160228
  29. POMALIDOMIDE [Suspect]
     Active Substance: POMALIDOMIDE
     Dosage: 4 MILLIGRAM
     Route: 048
     Dates: start: 20160223, end: 20160321
  30. POMALIDOMIDE [Suspect]
     Active Substance: POMALIDOMIDE
     Dosage: 84 MILLIGRAM (28 DAY)
     Route: 048
     Dates: start: 20160228
  31. POMALIDOMIDE [Suspect]
     Active Substance: POMALIDOMIDE
     Dosage: 63 MILLIGRAM
     Route: 048
     Dates: start: 20160223, end: 20160315
  32. POMALIDOMIDE [Suspect]
     Active Substance: POMALIDOMIDE
     Dosage: 4 MILLIGRAM, UNKNOWN
     Route: 048
     Dates: start: 20160223, end: 20160228
  33. DALTEPARIN [Concomitant]
     Active Substance: DALTEPARIN
     Indication: Anticoagulant therapy
     Dosage: 5000 INTERNATIONAL UNIT, UNKNOWN
     Route: 065
     Dates: start: 20160223, end: 20160302
  34. DALTEPARIN [Concomitant]
     Active Substance: DALTEPARIN
     Dosage: 5000 INTERNATIONAL UNIT
     Route: 065
  35. DALTEPARIN [Concomitant]
     Active Substance: DALTEPARIN
     Dosage: 5000 INTERNATIONAL UNIT
     Route: 065
  36. DALTEPARIN [Concomitant]
     Active Substance: DALTEPARIN
     Dosage: 5000 INTERNATIONAL UNIT
     Route: 065
  37. OMEPRAZOLE [Concomitant]
     Active Substance: OMEPRAZOLE
     Indication: Product used for unknown indication
     Dosage: 20 MILLIGRAM, PER DAY, TABLET (UNCOATED)
     Route: 048
     Dates: start: 20160223

REACTIONS (10)
  - Acute kidney injury [Fatal]
  - Rash [Fatal]
  - Thrombocytopenia [Fatal]
  - Neutropenia [Fatal]
  - Bone marrow failure [Fatal]
  - Plasma cell myeloma [Fatal]
  - Pneumonia [Fatal]
  - Intentional product misuse [Fatal]
  - Condition aggravated [Fatal]
  - Off label use [Unknown]
